FAERS Safety Report 8127983-0 (Version None)
Quarter: 2012Q1

REPORT INFORMATION
  Report Type: 
  Country: None (occurrence: None)
  Receive Date: 20120210
  Receipt Date: 20111202
  Transmission Date: 20120608
  Serious: No
  Sender: FDA-Public Use
  Company Number: US-GLAXOSMITHKLINE-A0956479A

PATIENT
  Age: 57 Year
  Sex: Male

DRUGS (3)
  1. KLONOPIN [Concomitant]
  2. IBUPROFEN [Concomitant]
  3. PAROXETINE [Suspect]
     Indication: POST-TRAUMATIC STRESS DISORDER
     Dosage: 37.5MG PER DAY
     Route: 048
     Dates: start: 20100701, end: 20100721

REACTIONS (4)
  - BLOOD PRESSURE INCREASED [None]
  - TOOTH FRACTURE [None]
  - BRUXISM [None]
  - TOOTH INJURY [None]
